FAERS Safety Report 4726711-6 (Version None)
Quarter: 2005Q3

REPORT INFORMATION
  Report Type: 
  Country: None (occurrence: None)
  Receive Date: 20050725
  Receipt Date: 20050211
  Transmission Date: 20060218
  Serious: No
  Sender: FDA-Public Use
  Company Number: USA041285429

PATIENT
  Age: 34 Year
  Sex: Male
  Weight: 72 kg

DRUGS (1)
  1. STRATTERA [Suspect]
     Indication: ATTENTION DEFICIT/HYPERACTIVITY DISORDER
     Dosage: 40 MG
     Dates: start: 20041101

REACTIONS (3)
  - AGITATION [None]
  - TACHYCARDIA [None]
  - TREMOR [None]
